FAERS Safety Report 5020549-0 (Version None)
Quarter: 2006Q2

REPORT INFORMATION
  Report Type: 
  Country: None (occurrence: None)
  Receive Date: 20060606
  Receipt Date: 20060522
  Transmission Date: 20061013
  Serious: Yes (Other)
  Sender: FDA-Public Use
  Company Number: 2006S1004662

PATIENT
  Age: 37 Year
  Sex: Female

DRUGS (3)
  1. FENTANYL TRANSDERMAL SYSTEM [Suspect]
     Indication: BACK PAIN
     Dosage: 50 UG/HR ; Q3D ; TRANS
     Route: 062
     Dates: start: 20060401
  2. FENTANYL TRANSDERMAL SYSTEM [Suspect]
     Indication: NECK PAIN
     Dosage: 50 UG/HR ; Q3D ; TRANS
     Route: 062
     Dates: start: 20060401
  3. PARACETAMOL/HYDROCODONE BITARTRATE [Concomitant]

REACTIONS (7)
  - BACK PAIN [None]
  - CONDITION AGGRAVATED [None]
  - DRUG WITHDRAWAL SYNDROME [None]
  - INCORRECT DRUG ADMINISTRATION DURATION [None]
  - NECK PAIN [None]
  - PHARMACEUTICAL PRODUCT COMPLAINT [None]
  - WRONG TECHNIQUE IN DRUG USAGE PROCESS [None]
